FAERS Safety Report 8889376 (Version 1)
Quarter: 2012Q4

REPORT INFORMATION
  Report Type: Spontaneous
  Country: US (occurrence: None)
  Receive Date: 20121101
  Receipt Date: 20121101
  Transmission Date: 20130627
  Serious: No
  Sender: FDA-Public Use
  Company Number: None

PATIENT
  Age: 20 Year
  Sex: Female
  Weight: 54.43 kg

DRUGS (1)
  1. OXCARBAZEPINE [Suspect]
     Indication: SEIZURE DISORDER
     Route: 048
     Dates: start: 20121002

REACTIONS (5)
  - Convulsion [None]
  - Product substitution issue [None]
  - Product quality issue [None]
  - Product odour abnormal [None]
  - Product colour issue [None]
